FAERS Safety Report 6515689-0 (Version None)
Quarter: 2009Q4

REPORT INFORMATION
  Report Type: 
  Country: None (occurrence: None)
  Receive Date: 20091223
  Receipt Date: 20091216
  Transmission Date: 20100525
  Serious: Yes (Other)
  Sender: FDA-Public Use
  Company Number: US-JNJFOC-20091205278

PATIENT
  Sex: Female

DRUGS (11)
  1. INFLIXIMAB [Suspect]
     Indication: RHEUMATOID ARTHRITIS
     Route: 042
  2. LEVAQUIN [Concomitant]
  3. BONIVA [Concomitant]
  4. ASPIRIN [Concomitant]
  5. CITRACAL + D [Concomitant]
     Dosage: DOSE:1500-200 MG-IU TAB
  6. METHOTREXATE [Concomitant]
  7. FOLIC ACID [Concomitant]
  8. LIPITOR [Concomitant]
  9. ESTRADIOL, NORETHINDRONE ACETATE [Concomitant]
     Dosage: DOSE: 1-0.5 MG
  10. ACTONEL [Concomitant]
  11. IBUPROFEN [Concomitant]

REACTIONS (3)
  - BREAST CANCER [None]
  - CEREBROVASCULAR ACCIDENT [None]
  - OSTEOPOROSIS [None]
